FAERS Safety Report 7516357-9 (Version None)
Quarter: 2011Q2

REPORT INFORMATION
  Report Type: 
  Country: None (occurrence: None)
  Receive Date: 20110428
  Receipt Date: 20101210
  Transmission Date: 20111010
  Serious: Yes (Death, Hospitalization)
  Sender: FDA-Public Use
  Company Number: 2010PROUSA00033

PATIENT
  Age: 65 Year
  Sex: Male

DRUGS (27)
  1. LASIX [Concomitant]
  2. HUMULIN /00646001/ (INSULIN HUMAN) [Concomitant]
  3. COREG [Concomitant]
  4. SINGULAIR [Concomitant]
  5. ALDACTONE [Concomitant]
  6. SPIRONOLACTONE [Concomitant]
  7. SENNA /00142201/ 9SENNA ALEXANDRINA) [Concomitant]
  8. LUPRON (LUPRORELIN ACETATE) [Concomitant]
  9. PROVENGE [Suspect]
     Indication: PROSTATE CANCER METASTATIC
     Dosage: 250 ML, SINGLE, INTRAVENOUS, 250 ML, SINGLE, INTRAVENOUS, 250 ML, SINGLE, INTRAVENOUS
     Route: 042
     Dates: start: 20100719, end: 20100719
  10. PROVENGE [Suspect]
     Indication: PROSTATE CANCER METASTATIC
     Dosage: 250 ML, SINGLE, INTRAVENOUS, 250 ML, SINGLE, INTRAVENOUS, 250 ML, SINGLE, INTRAVENOUS
     Route: 042
     Dates: start: 20100913, end: 20100913
  11. PROVENGE [Suspect]
     Indication: PROSTATE CANCER METASTATIC
     Dosage: 250 ML, SINGLE, INTRAVENOUS, 250 ML, SINGLE, INTRAVENOUS, 250 ML, SINGLE, INTRAVENOUS
     Route: 042
     Dates: start: 20100924, end: 20100924
  12. PRDNISONE (PREDNISONE) [Concomitant]
  13. NOVOLIN /00030501/ (INSULIN) [Concomitant]
  14. LANOXIN [Concomitant]
  15. VIOXX [Concomitant]
  16. SINGULAIR [Concomitant]
  17. DARVOCET [Concomitant]
  18. PROVENGE [Suspect]
  19. AVAPRO [Concomitant]
  20. SKELAXIN /00611501/ (METAXALONE) [Concomitant]
  21. AMBIEN [Concomitant]
  22. IRBESARTAN (IRBESARTAN) [Concomitant]
  23. LOVENOX [Concomitant]
  24. PROVENGE [Suspect]
  25. ALLEGRA [Concomitant]
  26. PROTONIX [Concomitant]
  27. DIGOXIN [Concomitant]

REACTIONS (7)
  - BACK PAIN [None]
  - CEREBROVASCULAR ACCIDENT [None]
  - MITRAL VALVE INCOMPETENCE [None]
  - INFLUENZA LIKE ILLNESS [None]
  - SEPSIS [None]
  - ATRIAL SEPTAL DEFECT [None]
  - TRANSIENT ISCHAEMIC ATTACK [None]
